FAERS Safety Report 6864505-6 (Version None)
Quarter: 2010Q3

REPORT INFORMATION
  Report Type: 
  Country: None (occurrence: None)
  Receive Date: 20100721
  Receipt Date: 20080324
  Transmission Date: 20110219
  Serious: No
  Sender: FDA-Public Use
  Company Number: US-PFIZER INC-2008027125

PATIENT
  Sex: Female
  Weight: 81.6 kg

DRUGS (7)
  1. CHANTIX [Suspect]
     Indication: SMOKING CESSATION THERAPY
     Route: 048
     Dates: start: 20080216
  2. ALL OTHER THERAPEUTIC PRODUCTS [Concomitant]
  3. NAPROXEN [Concomitant]
  4. LYRICA [Concomitant]
  5. FLEXERIL [Concomitant]
  6. PERCOCET [Concomitant]
  7. CYMBALTA [Concomitant]

REACTIONS (2)
  - DYSGEUSIA [None]
  - TINNITUS [None]
